FAERS Safety Report 15632778 (Version 1)
Quarter: 2018Q4

REPORT INFORMATION
  Report Type: Spontaneous
  Country: US (occurrence: US)
  Receive Date: 20181113
  Receipt Date: 20181113
  Transmission Date: 20190205
  Serious: Yes (Other)
  Sender: FDA-Public Use
  Company Number: None

PATIENT
  Age: 65 Year
  Sex: Male
  Weight: 117 kg

DRUGS (4)
  1. ATENOLOL. [Concomitant]
     Active Substance: ATENOLOL
  2. SUTENT [Suspect]
     Active Substance: SUNITINIB MALATE
     Indication: MALIGNANT ANORECTAL NEOPLASM
     Route: 048
     Dates: start: 20130326, end: 20181113
  3. IBUPROFEN. [Concomitant]
     Active Substance: IBUPROFEN
  4. HYDROCHLOROTHIAZIDE. [Concomitant]
     Active Substance: HYDROCHLOROTHIAZIDE

REACTIONS (11)
  - Rash [None]
  - Fatigue [None]
  - Hair colour changes [None]
  - Nausea [None]
  - Diarrhoea [None]
  - Decreased appetite [None]
  - Abdominal discomfort [None]
  - Neutropenia [None]
  - Arthralgia [None]
  - Thrombocytopenia [None]
  - Glossodynia [None]

NARRATIVE: CASE EVENT DATE: 20181113
